FAERS Safety Report 24681716 (Version 1)
Quarter: 2024Q4

REPORT INFORMATION
  Report Type: Report from Study
  Country: ZA (occurrence: ZA)
  Receive Date: 20241130
  Receipt Date: 20241130
  Transmission Date: 20250114
  Serious: Yes (Hospitalization)
  Sender: ALEXION PHARMACEUTICALS
  Company Number: ZA-AstraZeneca-CH-00755836A

PATIENT
  Age: 73 Year

DRUGS (7)
  1. DAPAGLIFLOZIN [Suspect]
     Active Substance: DAPAGLIFLOZIN
     Indication: Diabetes mellitus
     Dosage: 10 MILLIGRAM
  2. ENALAPRIL [Concomitant]
     Active Substance: ENALAPRIL
     Indication: Hypertension
     Dosage: 10 MILLIGRAM
  3. INDAPAMIDE [Concomitant]
     Active Substance: INDAPAMIDE
     Indication: Hypertension
     Dosage: 2.5 MILLIGRAM
  4. ENALAPRIL MALEATE [Concomitant]
     Active Substance: ENALAPRIL MALEATE
     Indication: Hypertension
     Dosage: 10 MILLIGRAM
  5. ATENOLOL [Concomitant]
     Active Substance: ATENOLOL
     Indication: Hypertension
     Dosage: 100 MILLIGRAM
  6. LIPOGEN [Concomitant]
     Indication: Blood cholesterol
     Dosage: 10 MILLIGRAM
  7. AMITRIPTYLINE [Concomitant]
     Active Substance: AMITRIPTYLINE
     Indication: Depression
     Dosage: 25 MILLIGRAM

REACTIONS (4)
  - Wound infection [Unknown]
  - Radiation injury [Unknown]
  - Dyspnoea [Unknown]
  - Blood glucose increased [Not Recovered/Not Resolved]
